FAERS Safety Report 10960043 (Version 1)
Quarter: 2015Q1

REPORT INFORMATION
  Report Type: Spontaneous
  Country: US (occurrence: None)
  Receive Date: 20150326
  Receipt Date: 20150326
  Transmission Date: 20150721
  Serious: Yes (Hospitalization)
  Sender: FDA-Public Use
  Company Number: None

PATIENT
  Age: 57 Year
  Sex: Male
  Weight: 106.5 kg

DRUGS (1)
  1. BEVACIZUMAB (RHUMAB VEGF) [Suspect]
     Active Substance: BEVACIZUMAB
     Dates: end: 20080322

REACTIONS (4)
  - Electrocardiogram abnormal [None]
  - Electrocardiogram ST segment elevation [None]
  - Ventricular tachycardia [None]
  - Chest discomfort [None]

NARRATIVE: CASE EVENT DATE: 20080324
